FAERS Safety Report 6541104-7 (Version None)
Quarter: 2010Q1

REPORT INFORMATION
  Report Type: 
  Country: None (occurrence: None)
  Receive Date: 20100118
  Receipt Date: 20100111
  Transmission Date: 20100710
  Serious: Yes (Other)
  Sender: FDA-Public Use
  Company Number: US-ROCHE-678904

PATIENT
  Sex: Male

DRUGS (6)
  1. CELLCEPT [Suspect]
     Route: 048
     Dates: start: 20090301, end: 20091001
  2. CELLCEPT [Suspect]
     Route: 048
     Dates: start: 20091001, end: 20100101
  3. RITUXAN [Suspect]
     Route: 042
     Dates: start: 20091001, end: 20100101
  4. VALCYTE [Concomitant]
  5. BACTRIM [Concomitant]
  6. DIFLUCAN [Concomitant]

REACTIONS (3)
  - ABDOMINAL DISCOMFORT [None]
  - DIABETES MELLITUS [None]
  - TRANSPLANT REJECTION [None]
